FAERS Safety Report 10004137 (Version 1)
Quarter: 2014Q1

REPORT INFORMATION
  Report Type: Spontaneous
  Country: FR (occurrence: FR)
  Receive Date: 20140312
  Receipt Date: 20140312
  Transmission Date: 20141002
  Serious: Yes (Other)
  Sender: FDA-Public Use
  Company Number: FR-B.I. PHARMACEUTICALS,INC./RIDGEFIELD-2014-BI-10041FF

PATIENT
  Age: 70 Year
  Sex: Female

DRUGS (6)
  1. PRADAXA [Suspect]
     Indication: PRODUCT USED FOR UNKNOWN INDICATION
     Dosage: 300 MG
     Route: 048
  2. LEVOTHYROX 125 MCG [Concomitant]
     Dosage: 250 MCG
     Route: 048
  3. LASILIX FAIBLE [Concomitant]
     Dosage: 20 MG
     Route: 048
  4. COVERSYL [Concomitant]
     Dosage: 5 MG
     Route: 048
  5. SELOZOK [Concomitant]
     Route: 048
  6. ALDACTONE [Concomitant]
     Dosage: 25 MG
     Route: 048

REACTIONS (1)
  - Melaena [Recovered/Resolved]
